FAERS Safety Report 7547434-4 (Version None)
Quarter: 2011Q2

REPORT INFORMATION
  Report Type: 
  Country: None (occurrence: None)
  Receive Date: 20110614
  Receipt Date: 20110120
  Transmission Date: 20111010
  Serious: Yes (Other)
  Sender: FDA-Public Use
  Company Number: US-BAYER-201038678NA

PATIENT
  Age: 30 Year
  Sex: Female
  Weight: 51.701 kg

DRUGS (4)
  1. ALBUTEROL SULFATE AUTOHALER [Concomitant]
     Dosage: UNK
     Dates: start: 20081101
  2. YASMIN [Suspect]
     Indication: CONTRACEPTION
     Dosage: UNK UNK, UNK
     Route: 048
     Dates: start: 20040101
  3. NSAID'S [Concomitant]
     Dosage: UNK UNK, PRN
  4. ANTIBIOTICS [Concomitant]

REACTIONS (4)
  - PAIN [None]
  - EMOTIONAL DISTRESS [None]
  - INJURY [None]
  - TRANSIENT ISCHAEMIC ATTACK [None]
